FAERS Safety Report 4699476-4 (Version None)
Quarter: 2005Q2

REPORT INFORMATION
  Report Type: 
  Country: None (occurrence: None)
  Receive Date: 20050622
  Receipt Date: 20050608
  Transmission Date: 20051028
  Serious: Yes (Death)
  Sender: FDA-Public Use
  Company Number: 2005EU001229

PATIENT
  Age: 53 Year
  Sex: Male

DRUGS (3)
  1. PROGRAF [Suspect]
     Indication: GRAFT VERSUS HOST DISEASE
     Dosage: D
     Dates: start: 20041111, end: 20041101
  2. SANDIMMUNE [Concomitant]
  3. PREDNISOLONE [Concomitant]

REACTIONS (6)
  - DEHYDRATION [None]
  - GENERAL PHYSICAL HEALTH DETERIORATION [None]
  - JAUNDICE [None]
  - ORAL CANDIDIASIS [None]
  - PANCREATITIS [None]
  - SKIN HYPERPIGMENTATION [None]
